FAERS Safety Report 20919121 (Version 1)
Quarter: 2022Q2

REPORT INFORMATION
  Report Type: Spontaneous
  Country: JP (occurrence: JP)
  Receive Date: 20220606
  Receipt Date: 20220606
  Transmission Date: 20220721
  Serious: Yes (Death, Other)
  Sender: FDA-Public Use
  Company Number: JP-PFIZER INC-202200751139

PATIENT
  Age: 3 Year
  Sex: Female

DRUGS (5)
  1. METHOTREXATE SODIUM [Suspect]
     Active Substance: METHOTREXATE SODIUM
     Indication: Prophylaxis against graft versus host disease
     Dosage: UNK
  2. TACROLIMUS [Suspect]
     Active Substance: TACROLIMUS
     Indication: Prophylaxis against graft versus host disease
     Dosage: UNK
  3. FLUDARABINE [Concomitant]
     Active Substance: FLUDARABINE PHOSPHATE
     Indication: Allogenic bone marrow transplantation therapy
     Dosage: 125 MG/M2
  4. MELPHALAN [Concomitant]
     Active Substance: MELPHALAN
     Indication: Allogenic bone marrow transplantation therapy
     Dosage: 180 MG/M2
  5. THYMOCYTE IMMUNE GLOBULIN NOS [Concomitant]
     Active Substance: THYMOCYTE IMMUNE GLOBULIN NOS
     Indication: Allogenic bone marrow transplantation therapy
     Dosage: 2.5 MG/KG

REACTIONS (4)
  - Acute graft versus host disease [Fatal]
  - Transplant rejection [Fatal]
  - Drug ineffective for unapproved indication [Unknown]
  - Off label use [Unknown]
